FAERS Safety Report 19293519 (Version 1)
Quarter: 2021Q2

REPORT INFORMATION
  Report Type: Spontaneous
  Country: US (occurrence: US)
  Receive Date: 20210524
  Receipt Date: 20210524
  Transmission Date: 20210717
  Serious: Yes (Other)
  Sender: FDA-Public Use
  Company Number: US-SA-2021SA164804

PATIENT
  Age: 62 Year
  Sex: Male

DRUGS (2)
  1. ZANTAC [Suspect]
     Active Substance: RANITIDINE HYDROCHLORIDE
     Indication: DYSPEPSIA
  2. ZANTAC [Suspect]
     Active Substance: RANITIDINE HYDROCHLORIDE
     Indication: HYPERCHLORHYDRIA
     Dosage: 150 MG, QD
     Dates: start: 200001, end: 201112

REACTIONS (5)
  - Bladder cancer [Unknown]
  - Lung neoplasm malignant [Unknown]
  - Renal cancer [Unknown]
  - Brain neoplasm malignant [Unknown]
  - Prostate cancer [Unknown]

NARRATIVE: CASE EVENT DATE: 20110401
